FAERS Safety Report 7900578-7 (Version None)
Quarter: 2011Q4

REPORT INFORMATION
  Report Type: 
  Country: None (occurrence: None)
  Receive Date: 20111104
  Receipt Date: 20111025
  Transmission Date: 20120403
  Serious: Yes (Hospitalization, Other)
  Sender: FDA-Public Use
  Company Number: INT_00032_2011

PATIENT
  Sex: Male

DRUGS (4)
  1. MEROPENEM [Concomitant]
  2. COLISTINE [Concomitant]
  3. CEFTAZIDIME [Suspect]
     Indication: OSTEITIS
     Dosage: 10 G PER DAY FOR UNKNOWN INTRAVENOUS DRIP, 5 G PER DAY FOR UNKNOWN INTRAVENOUS DRIP
     Route: 041
     Dates: start: 20100301
  4. CEFTAZIDIME [Suspect]
     Indication: OSTEITIS
     Dosage: 10 G PER DAY FOR UNKNOWN INTRAVENOUS DRIP, 5 G PER DAY FOR UNKNOWN INTRAVENOUS DRIP
     Route: 041
     Dates: start: 20100101

REACTIONS (8)
  - NEUROTOXICITY [None]
  - DYSPNOEA [None]
  - DRUG LEVEL INCREASED [None]
  - RENAL FAILURE [None]
  - DELIRIUM [None]
  - HALLUCINATION [None]
  - CONFUSIONAL STATE [None]
  - ASTERIXIS [None]
